FAERS Safety Report 9961195 (Version 2)
Quarter: 2014Q1

REPORT INFORMATION
  Report Type: Report from Study
  Country: JP (occurrence: JP)
  Receive Date: 20140305
  Receipt Date: 20140305
  Transmission Date: 20141002
  Serious: No
  Sender: FDA-Public Use
  Company Number: PHHY2010JP095094

PATIENT
  Age: 54 Year
  Sex: Female

DRUGS (1)
  1. ESTRAPAK [Suspect]
     Indication: HORMONE REPLACEMENT THERAPY
     Dosage: 1 DF, BIW
     Dates: start: 20090427, end: 20090601

REACTIONS (2)
  - Endometrial dysplasia [Recovered/Resolved]
  - Metrorrhagia [Recovered/Resolved]
